FAERS Safety Report 15470973 (Version 1)
Quarter: 2018Q4

REPORT INFORMATION
  Report Type: Spontaneous
  Country: US (occurrence: US)
  Receive Date: 20181006
  Receipt Date: 20181006
  Transmission Date: 20190205
  Serious: No
  Sender: FDA-Public Use
  Company Number: US-009507513-1810USA000171

PATIENT
  Sex: Male

DRUGS (2)
  1. LISINOPRIL. [Concomitant]
     Active Substance: LISINOPRIL
  2. PREGNYL [Suspect]
     Active Substance: CHORIOGONADOTROPIN ALFA
     Indication: ANDROGEN REPLACEMENT THERAPY
     Dosage: 100 UNITS WEEKLY
     Route: 030
     Dates: start: 2017

REACTIONS (2)
  - Product dose omission [Unknown]
  - Lethargy [Not Recovered/Not Resolved]
